FAERS Safety Report 20545456 (Version 2)
Quarter: 2022Q2

REPORT INFORMATION
  Report Type: Spontaneous
  Country: AT (occurrence: AT)
  Receive Date: 20220303
  Receipt Date: 20220420
  Transmission Date: 20220721
  Serious: Yes (Other)
  Sender: FDA-Public Use
  Company Number: AT-ABBVIE-22K-009-4299047-00

PATIENT
  Age: 44 Year
  Sex: Female

DRUGS (1)
  1. VENETOCLAX [Suspect]
     Active Substance: VENETOCLAX
     Indication: Acute myeloid leukaemia
     Route: 048
     Dates: start: 202104

REACTIONS (3)
  - Transfusion [Unknown]
  - Allogenic stem cell transplantation [Unknown]
  - Haemorrhage [Unknown]
